FAERS Safety Report 25079902 (Version 1)
Quarter: 2025Q1

REPORT INFORMATION
  Report Type: Spontaneous
  Country: CH (occurrence: CH)
  Receive Date: 20250314
  Receipt Date: 20250314
  Transmission Date: 20250408
  Serious: Yes (Death)
  Sender: MYLAN
  Company Number: None

PATIENT
  Age: 64 Year
  Sex: Male

DRUGS (28)
  1. AMLODIPINE [Suspect]
     Active Substance: AMLODIPINE BESYLATE
     Indication: Product used for unknown indication
  2. AMLODIPINE [Suspect]
     Active Substance: AMLODIPINE BESYLATE
     Route: 065
  3. AMLODIPINE [Suspect]
     Active Substance: AMLODIPINE BESYLATE
     Route: 065
  4. AMLODIPINE [Suspect]
     Active Substance: AMLODIPINE BESYLATE
  5. XARELTO [Suspect]
     Active Substance: RIVAROXABAN
     Indication: Product used for unknown indication
     Dates: start: 20240711, end: 20240713
  6. XARELTO [Suspect]
     Active Substance: RIVAROXABAN
     Route: 065
     Dates: start: 20240711, end: 20240713
  7. XARELTO [Suspect]
     Active Substance: RIVAROXABAN
     Route: 065
     Dates: start: 20240711, end: 20240713
  8. XARELTO [Suspect]
     Active Substance: RIVAROXABAN
     Dates: start: 20240711, end: 20240713
  9. PIPAMPERONE [Suspect]
     Active Substance: PIPAMPERONE
     Indication: Product used for unknown indication
     Dates: start: 20240711, end: 20240714
  10. PIPAMPERONE [Suspect]
     Active Substance: PIPAMPERONE
     Route: 065
     Dates: start: 20240711, end: 20240714
  11. PIPAMPERONE [Suspect]
     Active Substance: PIPAMPERONE
     Route: 065
     Dates: start: 20240711, end: 20240714
  12. PIPAMPERONE [Suspect]
     Active Substance: PIPAMPERONE
     Dates: start: 20240711, end: 20240714
  13. OLANZAPINE [Suspect]
     Active Substance: OLANZAPINE
     Indication: Product used for unknown indication
     Dates: start: 20240711, end: 20240713
  14. OLANZAPINE [Suspect]
     Active Substance: OLANZAPINE
     Route: 065
     Dates: start: 20240711, end: 20240713
  15. OLANZAPINE [Suspect]
     Active Substance: OLANZAPINE
     Route: 065
     Dates: start: 20240711, end: 20240713
  16. OLANZAPINE [Suspect]
     Active Substance: OLANZAPINE
     Dates: start: 20240711, end: 20240713
  17. LORAZEPAM [Suspect]
     Active Substance: LORAZEPAM
     Indication: Product used for unknown indication
     Dates: start: 20240714, end: 20240714
  18. LORAZEPAM [Suspect]
     Active Substance: LORAZEPAM
     Route: 065
     Dates: start: 20240714, end: 20240714
  19. LORAZEPAM [Suspect]
     Active Substance: LORAZEPAM
     Route: 065
     Dates: start: 20240714, end: 20240714
  20. LORAZEPAM [Suspect]
     Active Substance: LORAZEPAM
     Dates: start: 20240714, end: 20240714
  21. SERTRALINE [Suspect]
     Active Substance: SERTRALINE HYDROCHLORIDE
     Indication: Product used for unknown indication
     Dates: start: 20240712, end: 20240714
  22. SERTRALINE [Suspect]
     Active Substance: SERTRALINE HYDROCHLORIDE
     Route: 065
     Dates: start: 20240712, end: 20240714
  23. SERTRALINE [Suspect]
     Active Substance: SERTRALINE HYDROCHLORIDE
     Route: 065
     Dates: start: 20240712, end: 20240714
  24. SERTRALINE [Suspect]
     Active Substance: SERTRALINE HYDROCHLORIDE
     Dates: start: 20240712, end: 20240714
  25. RAMIPRIL [Suspect]
     Active Substance: RAMIPRIL
     Indication: Product used for unknown indication
  26. RAMIPRIL [Suspect]
     Active Substance: RAMIPRIL
     Route: 065
  27. RAMIPRIL [Suspect]
     Active Substance: RAMIPRIL
     Route: 065
  28. RAMIPRIL [Suspect]
     Active Substance: RAMIPRIL

REACTIONS (1)
  - Sudden death [Fatal]

NARRATIVE: CASE EVENT DATE: 20240714
